FAERS Safety Report 6971095-6 (Version None)
Quarter: 2010Q3

REPORT INFORMATION
  Report Type: 
  Country: None (occurrence: None)
  Receive Date: 20100908
  Receipt Date: 20100817
  Transmission Date: 20110219
  Serious: Yes (Hospitalization)
  Sender: FDA-Public Use
  Company Number: US-BAYER-200933612NA

PATIENT
  Age: 44 Year
  Sex: Female
  Weight: 61 kg

DRUGS (4)
  1. YAZ [Suspect]
     Indication: HEADACHE
     Route: 048
     Dates: start: 20060601, end: 20070101
  2. LOESTRIN 1.5/30 [Concomitant]
     Dates: start: 20070601
  3. PREVACID [Concomitant]
     Dates: start: 20080701
  4. SINGULAIR [Concomitant]
     Dates: start: 20080701

REACTIONS (1)
  - GALLBLADDER INJURY [None]
